FAERS Safety Report 7784370-2 (Version None)
Quarter: 2011Q3

REPORT INFORMATION
  Report Type: 
  Country: None (occurrence: None)
  Receive Date: 20110928
  Receipt Date: 20110922
  Transmission Date: 20111222
  Serious: Yes (Hospitalization)
  Sender: FDA-Public Use
  Company Number: PHEH2011US02557

PATIENT
  Sex: Female

DRUGS (2)
  1. EXJADE [Suspect]
     Dosage: 500 MG, QD
     Route: 048
  2. RED BLOOD CELLS, CONCENTRATED [Concomitant]
     Dosage: 2 U

REACTIONS (4)
  - VISUAL IMPAIRMENT [None]
  - OEDEMA [None]
  - ABDOMINAL PAIN [None]
  - HEADACHE [None]
